FAERS Safety Report 5523133-5 (Version None)
Quarter: 2007Q4

REPORT INFORMATION
  Report Type: 
  Country: None (occurrence: None)
  Receive Date: 20071116
  Receipt Date: 20071106
  Transmission Date: 20080405
  Serious: Yes (Hospitalization)
  Sender: FDA-Public Use
  Company Number: 17823

PATIENT
  Age: 70 Year
  Sex: Female

DRUGS (1)
  1. PACLITAXEL [Suspect]

REACTIONS (1)
  - ANAPHYLACTIC SHOCK [None]
